FAERS Safety Report 6632688 (Version 3)
Quarter: 2017Q2

REPORT INFORMATION
  Report Type: Report from Study
  Country: FR (occurrence: FR)
  Receive Date: 20080505
  Receipt Date: 20170420
  Transmission Date: 20170830
  Serious: Yes (Death, Other)
  Sender: FDA-Public Use
  Company Number: FR-PFIZER INC-2008021864

PATIENT
  Age: 60 Year
  Sex: Male
  Weight: 70 kg

DRUGS (1)
  1. SUTENT [Suspect]
     Active Substance: SUNITINIB MALATE
     Indication: THYROID CANCER METASTATIC
     Dosage: 50 MG, DAILY FOR 4 WEEKS FOLLOWED BY A 2-WEEK REST
     Route: 048
     Dates: start: 20080207

REACTIONS (6)
  - Mucous membrane disorder [Fatal]
  - Disease progression [Fatal]
  - Thyroid cancer metastatic [Fatal]
  - Bone pain [Fatal]
  - General physical health deterioration [Fatal]
  - Gastrointestinal perforation [Fatal]

NARRATIVE: CASE EVENT DATE: 20080303
